FAERS Safety Report 6148850-8 (Version None)
Quarter: 2009Q2

REPORT INFORMATION
  Report Type: 
  Country: None (occurrence: None)
  Receive Date: 20090408
  Receipt Date: 20090401
  Transmission Date: 20091009
  Serious: Yes (Death)
  Sender: FDA-Public Use
  Company Number: JP-MERCK-0903USA02219

PATIENT
  Age: 80 Year
  Sex: Female

DRUGS (6)
  1. SINGULAIR [Suspect]
     Route: 048
     Dates: end: 20090303
  2. HYZAAR [Concomitant]
     Route: 048
     Dates: start: 20071219, end: 20090213
  3. WARFARIN SODIUM [Suspect]
     Route: 048
     Dates: end: 20090303
  4. SELOKEN [Suspect]
     Indication: HYPERTROPHIC CARDIOMYOPATHY
     Route: 048
     Dates: end: 20090303
  5. SELOKEN [Suspect]
     Indication: ATRIAL FIBRILLATION
     Route: 048
     Dates: end: 20090303
  6. OMEPRAZOLE [Suspect]
     Indication: GASTRITIS
     Route: 048
     Dates: end: 20090303

REACTIONS (1)
  - INTERSTITIAL LUNG DISEASE [None]
